FAERS Safety Report 24059578 (Version 2)
Quarter: 2025Q2

REPORT INFORMATION
  Report Type: Report from Study
  Country: CN (occurrence: CN)
  Receive Date: 20240708
  Receipt Date: 20250516
  Transmission Date: 20250716
  Serious: Yes (Other)
  Sender: ROCHE
  Company Number: CN-ROCHE-2331618

PATIENT
  Age: 47 Year
  Sex: Female
  Weight: 49.0 kg

DRUGS (1)
  1. AVASTIN [Suspect]
     Active Substance: BEVACIZUMAB
     Indication: Appendiceal mucinous neoplasm
     Route: 042
     Dates: start: 20170427

REACTIONS (15)
  - Nasopharyngitis [Unknown]
  - Pyrexia [Unknown]
  - Malaise [Unknown]
  - Pneumonitis [Not Recovered/Not Resolved]
  - Cytoreductive surgery [Recovering/Resolving]
  - Platelet count decreased [Unknown]
  - White blood cell count decreased [Unknown]
  - Protein urine present [Unknown]
  - Pulmonary mass [Not Recovered/Not Resolved]
  - Urinary occult blood [Unknown]
  - Hydronephrosis [Not Recovered/Not Resolved]
  - Metastases to abdominal cavity [Not Recovered/Not Resolved]
  - Pseudomyxoma peritonei [Not Recovered/Not Resolved]
  - Ureteric dilatation [Not Recovered/Not Resolved]
  - Pyelocaliectasis [Not Recovered/Not Resolved]

NARRATIVE: CASE EVENT DATE: 20170609
